FAERS Safety Report 19908256 (Version 4)
Quarter: 2022Q1

REPORT INFORMATION
  Report Type: Spontaneous
  Country: US (occurrence: US)
  Receive Date: 20211001
  Receipt Date: 20220325
  Transmission Date: 20220424
  Serious: No
  Sender: FDA-Public Use
  Company Number: US-KARYOPHARM-2021KPT001082

PATIENT

DRUGS (16)
  1. XPOVIO [Suspect]
     Active Substance: SELINEXOR
     Indication: Plasma cell myeloma
     Dosage: 100 MG, WEEKLY
     Route: 048
     Dates: start: 20210813, end: 20210924
  2. XPOVIO [Suspect]
     Active Substance: SELINEXOR
     Dosage: 80 MG, WEEKLY
     Route: 048
     Dates: start: 20210924, end: 20211022
  3. XPOVIO [Suspect]
     Active Substance: SELINEXOR
     Dosage: 60 MG, WEEKLY
     Route: 048
     Dates: start: 20211022, end: 20211119
  4. XPOVIO [Suspect]
     Active Substance: SELINEXOR
     Dosage: 60 MG, WEEKLY
     Route: 048
     Dates: start: 20211203, end: 20211210
  5. BACTRIM DS [Concomitant]
     Active Substance: SULFAMETHOXAZOLE\TRIMETHOPRIM
  6. DEXAMETHASONE [Concomitant]
     Active Substance: DEXAMETHASONE
  7. ESZOPICLONE [Concomitant]
     Active Substance: ESZOPICLONE
  8. VENTOLIN HFA [Concomitant]
     Active Substance: ALBUTEROL SULFATE
  9. XANAX [Concomitant]
     Active Substance: ALPRAZOLAM
  10. CANNABIS SATIVA SUBSP. INDICA TOP [Concomitant]
     Active Substance: CANNABIS SATIVA SUBSP. INDICA TOP
  11. VELCADE [Concomitant]
     Active Substance: BORTEZOMIB
  12. ACYCLOVIR [Concomitant]
     Active Substance: ACYCLOVIR
  13. ONDANSETRON [Concomitant]
     Active Substance: ONDANSETRON
  14. OLANZAPINE [Concomitant]
     Active Substance: OLANZAPINE
  15. CLARITIN [Concomitant]
     Active Substance: LORATADINE
  16. PHENYLEPHRINE [Concomitant]
     Active Substance: PHENYLEPHRINE HYDROCHLORIDE

REACTIONS (11)
  - Platelet count decreased [Not Recovered/Not Resolved]
  - Abdominal discomfort [Unknown]
  - White blood cell count decreased [Unknown]
  - Red blood cell count decreased [Unknown]
  - Nausea [Not Recovered/Not Resolved]
  - Asthenia [Unknown]
  - Fatigue [Not Recovered/Not Resolved]
  - Decreased appetite [Not Recovered/Not Resolved]
  - Dizziness [Not Recovered/Not Resolved]
  - Confusional state [Unknown]
  - Therapeutic response decreased [Unknown]

NARRATIVE: CASE EVENT DATE: 20210101
